FAERS Safety Report 9564174 (Version 2)
Quarter: 2013Q4

REPORT INFORMATION
  Report Type: Spontaneous
  Country: US (occurrence: US)
  Receive Date: 20130930
  Receipt Date: 20131022
  Transmission Date: 20140711
  Serious: Yes (Other)
  Sender: FDA-Public Use
  Company Number: US-MERCK-1309USA013221

PATIENT
  Sex: Female

DRUGS (1)
  1. JANUVIA [Suspect]
     Indication: TYPE 2 DIABETES MELLITUS
     Dosage: UNK
     Route: 048
     Dates: start: 201201

REACTIONS (5)
  - Pancreatic carcinoma [Unknown]
  - Aphagia [Unknown]
  - Pancreatic enlargement [Unknown]
  - Abdominal discomfort [Unknown]
  - Abdominal discomfort [Unknown]
